FAERS Safety Report 18099683 (Version 1)
Quarter: 2020Q3

REPORT INFORMATION
  Report Type: Report from Study
  Country: DE (occurrence: DE)
  Receive Date: 20200731
  Receipt Date: 20200731
  Transmission Date: 20201103
  Serious: Yes (Other)
  Sender: FDA-Public Use
  Company Number: DE-AMGEN-DEUNI2020123721

PATIENT
  Age: 71 Year
  Sex: Male
  Weight: 96 kg

DRUGS (22)
  1. PANITUMUMAB [Suspect]
     Active Substance: PANITUMUMAB
     Dosage: 564 MILLIGRAM
     Route: 042
     Dates: start: 20200302
  2. PANITUMUMAB [Suspect]
     Active Substance: PANITUMUMAB
     Dosage: 540 MILLIGRAM
     Route: 042
     Dates: start: 20200504
  3. PANITUMUMAB [Suspect]
     Active Substance: PANITUMUMAB
     Dosage: 500 MILLIGRAM
     Route: 042
     Dates: start: 20200520
  4. FLUOROURACIL. [Suspect]
     Active Substance: FLUOROURACIL
     Dosage: 4800 MILLIGRAM
     Route: 042
     Dates: start: 20200203
  5. MOXONIDIN?RATIOPHARM [Concomitant]
     Indication: HYPERTENSION
     Dosage: 0.4 MILLIGRAM, BID
     Route: 048
  6. VOCADO [Concomitant]
     Active Substance: AMLODIPINE BESYLATE\OLMESARTAN MEDOXOMIL
     Indication: HYPERTENSION
     Dosage: 40 MILLIGRAM, QD
     Route: 048
  7. FLUOROURACIL. [Suspect]
     Active Substance: FLUOROURACIL
     Dosage: 856 MILLIGRAM
     Route: 040
     Dates: start: 20200302
  8. IRINOTECAN [Suspect]
     Active Substance: IRINOTECAN
     Dosage: 385 MILLIGRAM
     Route: 065
     Dates: start: 20200302
  9. FLUOROURACIL. [Suspect]
     Active Substance: FLUOROURACIL
     Dosage: 4800 MILLIGRAM
     Route: 042
     Dates: start: 20200406
  10. PANITUMUMAB [Suspect]
     Active Substance: PANITUMUMAB
     Indication: COLORECTAL CANCER METASTATIC
     Dosage: 600 MILLIGRAM
     Route: 042
     Dates: start: 20200203
  11. FOLINIC ACID [Suspect]
     Active Substance: LEUCOVORIN
     Dosage: 800 MILLIGRAM
     Route: 065
     Dates: start: 20200406
  12. IRINOTECAN [Suspect]
     Active Substance: IRINOTECAN
     Indication: COLORECTAL CANCER METASTATIC
     Dosage: 360 MILLIGRAM
     Route: 065
     Dates: start: 20200203
  13. PANITUMUMAB [Suspect]
     Active Substance: PANITUMUMAB
     Dosage: 546 MILLIGRAM
     Route: 042
     Dates: start: 20200604
  14. FOLINIC ACID [Suspect]
     Active Substance: LEUCOVORIN
     Indication: COLORECTAL CANCER METASTATIC
     Dosage: 800 MILLIGRAM
     Route: 065
     Dates: start: 20200203
  15. FOLINIC ACID [Suspect]
     Active Substance: LEUCOVORIN
     Dosage: 856 MILLIGRAM
     Route: 065
     Dates: start: 20200302
  16. FLUOROURACIL. [Suspect]
     Active Substance: FLUOROURACIL
     Indication: COLORECTAL CANCER METASTATIC
     Dosage: 800 MILLIGRAM
     Route: 040
     Dates: start: 20200203
  17. FLUOROURACIL. [Suspect]
     Active Substance: FLUOROURACIL
     Dosage: 5040 MILLIGRAM
     Route: 042
     Dates: start: 20200323
  18. FLUOROURACIL. [Suspect]
     Active Substance: FLUOROURACIL
     Dosage: 5136 MILLIGRAM
     Route: 042
     Dates: start: 20200302
  19. IRINOTECAN [Suspect]
     Active Substance: IRINOTECAN
     Dosage: 378 MILLIGRAM
     Route: 065
     Dates: start: 20200323
  20. PANITUMUMAB [Suspect]
     Active Substance: PANITUMUMAB
     Dosage: 500 MILLIGRAM
     Route: 042
     Dates: start: 20200323
  21. FOLINIC ACID [Suspect]
     Active Substance: LEUCOVORIN
     Dosage: 840 MILLIGRAM
     Route: 065
     Dates: start: 20200323
  22. IRINOTECAN [Suspect]
     Active Substance: IRINOTECAN
     Dosage: 360 MILLIGRAM
     Route: 065
     Dates: start: 20200406

REACTIONS (1)
  - Leukopenia [Recovered/Resolved]

NARRATIVE: CASE EVENT DATE: 20200316
